FAERS Safety Report 8956066 (Version 1)
Quarter: 2012Q4

REPORT INFORMATION
  Report Type: 
  Country: US (occurrence: US)
  Receive Date: 20121210
  Receipt Date: 20121210
  Transmission Date: 20130627
  Serious: No
  Sender: FDA-Public Use
  Company Number: US-PFIZER INC-2012070168

PATIENT
  Sex: Female

DRUGS (2)
  1. ADVIL COLD AND SINUS [Suspect]
     Dosage: UNK
     Route: 048
  2. DEXTROMETHORPHAN HYDRIODIDE\GUAIFENESIN [Interacting]
     Dosage: UNK
     Route: 065

REACTIONS (1)
  - Drug interaction [Unknown]
